FAERS Safety Report 5566460-8 (Version None)
Quarter: 2007Q4

REPORT INFORMATION
  Report Type: 
  Country: None (occurrence: None)
  Receive Date: 20071219
  Receipt Date: 20070521
  Transmission Date: 20080405
  Serious: No
  Sender: FDA-Public Use
  Company Number: US-ABBOTT-07P-163-0369313-00

PATIENT
  Sex: Female

DRUGS (1)
  1. VICODIN ES [Suspect]
     Indication: PAIN
     Route: 048
     Dates: start: 20050902

REACTIONS (2)
  - FEELING ABNORMAL [None]
  - GASTRIC DISORDER [None]
